FAERS Safety Report 9248423 (Version 1)
Quarter: 2013Q1

REPORT INFORMATION
  Report Type: Spontaneous
  Country: US (occurrence: None)
  Receive Date: 20130305
  Receipt Date: 20130305
  Transmission Date: 20140127
  Serious: Yes (Other)
  Sender: FDA-Public Use
  Company Number: 163-21880-12092224

PATIENT
  Age: 82 Year
  Sex: Male
  Weight: 60.69 kg

DRUGS (3)
  1. REVLIMID (LENALIDOMIDE) (CAPSULES) [Suspect]
     Indication: PLASMA CELL MYELOMA
     Dosage: 10 MG, EOD X 28 DAYS, PO
     Route: 048
     Dates: start: 20061110
  2. VELCADE [Concomitant]
  3. ASPIRIN [Concomitant]

REACTIONS (1)
  - Plasma cell myeloma [None]
